FAERS Safety Report 7501562-8 (Version None)
Quarter: 2011Q2

REPORT INFORMATION
  Report Type: 
  Country: None (occurrence: None)
  Receive Date: 20110524
  Receipt Date: 20110513
  Transmission Date: 20111010
  Serious: Yes (Hospitalization)
  Sender: FDA-Public Use
  Company Number: US-AMGEN-USASP2011024875

PATIENT
  Sex: Female

DRUGS (1)
  1. ENBREL [Suspect]
     Indication: RHEUMATOID ARTHRITIS
     Dosage: 50 MG, QWK
     Dates: start: 20091102

REACTIONS (6)
  - HYPOTENSION [None]
  - FLUID RETENTION [None]
  - RHEUMATOID ARTHRITIS [None]
  - CHEST PAIN [None]
  - BRONCHITIS [None]
  - DYSPNOEA [None]
